FAERS Safety Report 8828261 (Version 1)
Quarter: 2012Q4

REPORT INFORMATION
  Report Type: 
  Country: BR (occurrence: BR)
  Receive Date: 20121008
  Receipt Date: 20121008
  Transmission Date: 20130627
  Serious: Yes (Death)
  Sender: FDA-Public Use
  Company Number: PHHY2012BR086893

PATIENT
  Sex: Female

DRUGS (7)
  1. FORASEQ [Suspect]
     Indication: EMPHYSEMA
     Dosage: UNK ug, BID
  2. CALCIUM SANDOZ [Concomitant]
     Dosage: 1 g, UNK
  3. BENEFIBER [Concomitant]
     Dosage: 3.5 g, UNK
  4. CATAFLAM [Concomitant]
     Dosage: 11.6 mg/ 1gm
  5. CATAFLAM [Concomitant]
     Dosage: 1 g, UNK
  6. NICOTINELL [Concomitant]
     Dosage: UNK mg, UNK
  7. VENORUTON [Concomitant]
     Dosage: UNK

REACTIONS (1)
  - Death [Fatal]
